FAERS Safety Report 5317293-9 (Version None)
Quarter: 2007Q2

REPORT INFORMATION
  Report Type: 
  Country: None (occurrence: None)
  Receive Date: 20070504
  Receipt Date: 20070424
  Transmission Date: 20071010
  Serious: Yes (Other)
  Sender: FDA-Public Use
  Company Number: NL-ABBOTT-07P-114-0365934-00

PATIENT
  Sex: Male
  Weight: 80 kg

DRUGS (2)
  1. KLACID [Suspect]
     Indication: URINARY TRACT INFECTION
     Route: 048
     Dates: start: 20061228, end: 20070104
  2. RHINOGUTTAE XYLOMETAZOLINI HYDROCHLORIDE [Concomitant]
     Indication: DRUG USE FOR UNKNOWN INDICATION
     Dates: start: 20061228, end: 20070104

REACTIONS (2)
  - TOOTH DISORDER [None]
  - TOOTH LOSS [None]
